FAERS Safety Report 10326852 (Version 2)
Quarter: 2015Q1

REPORT INFORMATION
  Report Type: Other
  Country: US (occurrence: US)
  Receive Date: 20140720
  Receipt Date: 20150216
  Transmission Date: 20150720
  Serious: Yes (Hospitalization, Other)
  Sender: FDA-Public Use
  Company Number: US-GSKPPD-2014GSK040837

PATIENT
  Age: 59 Year
  Sex: Male

DRUGS (5)
  1. AVANDIA [Suspect]
     Active Substance: ROSIGLITAZONE MALEATE
     Indication: DIABETES MELLITUS
     Dosage: AVANDIA WAS NOT LISTED AMONG THE PATIENTS RECORDS REVIEWED.
     Route: 048
  2. COUMADIN [Concomitant]
     Active Substance: WARFARIN SODIUM
  3. ATENOLOL. [Concomitant]
     Active Substance: ATENOLOL
     Dates: end: 200802
  4. LISINOPRIL. [Concomitant]
     Active Substance: LISINOPRIL
     Dates: end: 200802
  5. DIGOXIN. [Concomitant]
     Active Substance: DIGOXIN

REACTIONS (2)
  - Cerebrovascular accident [Recovered/Resolved]
  - Cardiac failure congestive [Unknown]

NARRATIVE: CASE EVENT DATE: 20080228
